FAERS Safety Report 5516295-7 (Version None)
Quarter: 2007Q4

REPORT INFORMATION
  Report Type: 
  Country: None (occurrence: None)
  Receive Date: 20071114
  Receipt Date: 20070123
  Transmission Date: 20080405
  Serious: No
  Sender: FDA-Public Use
  Company Number: A0636499A

PATIENT
  Sex: Female

DRUGS (1)
  1. COMMIT [Suspect]
     Indication: DRUG USE FOR UNKNOWN INDICATION

REACTIONS (6)
  - DYSPEPSIA [None]
  - HYPERSENSITIVITY [None]
  - ILL-DEFINED DISORDER [None]
  - MALAISE [None]
  - THROAT IRRITATION [None]
  - VOMITING [None]
